FAERS Safety Report 10232562 (Version 1)
Quarter: 2014Q2

REPORT INFORMATION
  Report Type: Spontaneous
  Country: US (occurrence: None)
  Receive Date: 20140611
  Receipt Date: 20140611
  Transmission Date: 20141212
  Serious: Yes (Hospitalization)
  Sender: FDA-Public Use
  Company Number: None

PATIENT
  Age: 60 Year
  Sex: Male
  Weight: 113.4 kg

DRUGS (1)
  1. AMPYRA [Suspect]
     Indication: MULTIPLE SCLEROSIS
     Dosage: 1, TWICE DAILY, TAKEN BY MOUTH
     Route: 048
     Dates: start: 20140118, end: 20140414

REACTIONS (5)
  - Neck pain [None]
  - Chest pain [None]
  - Dizziness [None]
  - Hyperhidrosis [None]
  - Heart rate increased [None]
